FAERS Safety Report 8242276-9 (Version None)
Quarter: 2012Q1

REPORT INFORMATION
  Report Type: 
  Country: None (occurrence: None)
  Receive Date: 20120314
  Receipt Date: 20101007
  Transmission Date: 20120608
  Serious: Yes (Other)
  Sender: FDA-Public Use
  Company Number: PHHY2010US69862

PATIENT
  Age: 25 Year
  Sex: Female
  Weight: 73 kg

DRUGS (2)
  1. FANAPT [Suspect]
     Indication: SCHIZOPHRENIA
     Dosage: 6 MG, BID, ORAL ; 10 MG, BID, ORAL
     Route: 048
     Dates: start: 20100920, end: 20100921
  2. CLONAZEPAM [Concomitant]

REACTIONS (1)
  - TACHYCARDIA [None]
